FAERS Safety Report 4901936-5 (Version None)
Quarter: 2006Q1

REPORT INFORMATION
  Report Type: 
  Country: None (occurrence: None)
  Receive Date: 20060206
  Receipt Date: 20060117
  Transmission Date: 20060701
  Serious: Yes (Hospitalization)
  Sender: FDA-Public Use
  Company Number: 2006CG00129

PATIENT
  Age: 72 Year
  Sex: Male

DRUGS (4)
  1. ZOLADEX [Suspect]
     Indication: PROSTATE CANCER
     Route: 058
     Dates: start: 20041201
  2. MUPHORAN [Suspect]
     Route: 042
     Dates: start: 20051108, end: 20051122
  3. ACTRAPID [Concomitant]
  4. LANTUS [Concomitant]

REACTIONS (3)
  - DERMATOMYOSITIS [None]
  - DYSPHAGIA [None]
  - ECZEMA [None]
